FAERS Safety Report 24034449 (Version 1)
Quarter: 2024Q2

REPORT INFORMATION
  Report Type: Spontaneous
  Country: US (occurrence: None)
  Receive Date: 20240628
  Receipt Date: 20240628
  Transmission Date: 20240716
  Serious: Yes (Hospitalization)
  Sender: FDA-Public Use
  Company Number: None

PATIENT
  Age: 76 Year
  Sex: Male

DRUGS (23)
  1. AMBRISENTAN [Suspect]
     Active Substance: AMBRISENTAN
     Indication: Pulmonary arterial hypertension
     Dosage: FREQUENCY : DAILY;?
     Route: 048
     Dates: start: 20131122
  2. SILDENAFIL [Concomitant]
     Active Substance: SILDENAFIL
  3. UPTRAVI [Concomitant]
     Active Substance: SELEXIPAG
  4. OXYCODONE [Concomitant]
     Active Substance: OXYCODONE\OXYCODONE HYDROCHLORIDE
  5. PREDNISONE [Concomitant]
     Active Substance: PREDNISONE
  6. TORSEMIDE TRELEGY ELIPTA [Concomitant]
  7. ASTELIN [Concomitant]
     Active Substance: AZELASTINE HYDROCHLORIDE
  8. INSPRA [Concomitant]
     Active Substance: EPLERENONE
  9. ATENOLOL [Concomitant]
     Active Substance: ATENOLOL
  10. ALBUTEROL SULFATE [Concomitant]
     Active Substance: ALBUTEROL SULFATE
  11. ALBUTEROL NEB SOLN [Concomitant]
  12. LACTOBACILLUS ACIDOPHILUS [Concomitant]
     Active Substance: LACTOBACILLUS ACIDOPHILUS
  13. MUCINEX DM [Concomitant]
     Active Substance: DEXTROMETHORPHAN HYDROBROMIDE\GUAIFENESIN
  14. BENZONATATE [Concomitant]
     Active Substance: BENZONATATE
  15. PANTOPRAZOLE [Concomitant]
     Active Substance: PANTOPRAZOLE
  16. DULOXETINE [Concomitant]
     Active Substance: DULOXETINE
  17. LOSARTAN [Concomitant]
     Active Substance: LOSARTAN
  18. ROSUVASTATIN [Concomitant]
     Active Substance: ROSUVASTATIN
  19. FLONASE [Concomitant]
     Active Substance: FLUTICASONE PROPIONATE
  20. WARFARIN [Concomitant]
     Active Substance: WARFARIN
  21. NORCO [Concomitant]
     Active Substance: ACETAMINOPHEN\HYDROCODONE BITARTRATE
  22. NARCAN [Concomitant]
     Active Substance: NALOXONE HYDROCHLORIDE
  23. VITAMIN B12 [Concomitant]
     Active Substance: CYANOCOBALAMIN

REACTIONS (5)
  - Back pain [None]
  - Pain [None]
  - Gait inability [None]
  - Lumbar spinal stenosis [None]
  - Vertebral foraminal stenosis [None]

NARRATIVE: CASE EVENT DATE: 20240612
